FAERS Safety Report 6910069-8 (Version None)
Quarter: 2010Q3

REPORT INFORMATION
  Report Type: 
  Country: None (occurrence: None)
  Receive Date: 20100806
  Receipt Date: 20100729
  Transmission Date: 20110219
  Serious: Yes (Death)
  Sender: FDA-Public Use
  Company Number: US-JNJFOC-20090401280

PATIENT
  Sex: Male
  Weight: 102.51 kg

DRUGS (10)
  1. FENTANYL [Suspect]
     Indication: PAIN
     Route: 062
  2. PERCOCET [Concomitant]
     Indication: PAIN
     Route: 065
  3. MEPROBAMATE [Concomitant]
  4. CARISOPRODOL [Concomitant]
     Indication: MUSCLE SPASMS
  5. ALPRAZOLAM [Concomitant]
     Indication: ANXIETY
  6. PROMETHAZINE [Concomitant]
     Indication: NAUSEA
     Dosage: ONE EVERY 4-6 HOURS
  7. ATENOLOL [Concomitant]
  8. AMITRIPTYLINE HYDROCHLORIDE [Concomitant]
  9. ACETAMINOPHEN [Concomitant]
  10. DILAUDID [Concomitant]
     Indication: BREAKTHROUGH PAIN
     Route: 065

REACTIONS (2)
  - DRUG TOXICITY [None]
  - WRONG TECHNIQUE IN DRUG USAGE PROCESS [None]
